FAERS Safety Report 9070712 (Version 1)
Quarter: 2013Q1

REPORT INFORMATION
  Report Type: Report from Study
  Country: US (occurrence: US)
  Receive Date: 20130128
  Receipt Date: 20130128
  Transmission Date: 20140127
  Serious: Yes (Other)
  Sender: FDA-Public Use
  Company Number: US-ABBOTT-12P-163-0895266-00

PATIENT
  Age: 73 Year
  Sex: Female

DRUGS (5)
  1. HUMIRA 40 MG/0.8 ML PEN [Suspect]
     Indication: CROHN^S DISEASE
     Dates: start: 20110520
  2. SYNTHROID [Concomitant]
     Indication: HYPOTHYROIDISM
  3. DILTIAZEM [Concomitant]
     Indication: PRODUCT USED FOR UNKNOWN INDICATION
     Dosage: EVERY DAY
  4. CELEXA [Concomitant]
     Indication: DEPRESSION
  5. LISINOPRIL [Concomitant]
     Indication: HYPERTENSION
     Dosage: 20 MG DAILY

REACTIONS (5)
  - Cataract [Unknown]
  - Nasopharyngitis [Unknown]
  - Cough [Unknown]
  - Blood pressure fluctuation [Recovering/Resolving]
  - Therapeutic response unexpected [Recovering/Resolving]
